FAERS Safety Report 14474614 (Version 2)
Quarter: 2018Q2

REPORT INFORMATION
  Report Type: Spontaneous
  Country: FR (occurrence: FR)
  Receive Date: 20180201
  Receipt Date: 20180507
  Transmission Date: 20180711
  Serious: Yes (Hospitalization)
  Sender: FDA-Public Use
  Company Number: FR-MYLANLABS-2018M1005895

PATIENT
  Age: 26 Year
  Sex: Female

DRUGS (3)
  1. TAMSULOSIN [Concomitant]
     Active Substance: TAMSULOSIN
     Indication: SECONDARY PROGRESSIVE MULTIPLE SCLEROSIS
     Dosage: UNK
     Route: 065
  2. BACLOFEN. [Suspect]
     Active Substance: BACLOFEN
     Indication: PRODUCT USED FOR UNKNOWN INDICATION
     Dosage: TAPERED DOWN
     Route: 065
  3. DALFAMPRIDINE. [Interacting]
     Active Substance: DALFAMPRIDINE
     Indication: SECONDARY PROGRESSIVE MULTIPLE SCLEROSIS
     Dosage: 10 MG, TID
     Route: 065

REACTIONS (4)
  - Drug interaction [Unknown]
  - Myoclonus [Recovering/Resolving]
  - Status epilepticus [Recovering/Resolving]
  - Generalised tonic-clonic seizure [Recovering/Resolving]
